FAERS Safety Report 5578408-0 (Version None)
Quarter: 2007Q4

REPORT INFORMATION
  Report Type: 
  Country: None (occurrence: None)
  Receive Date: 20071130
  Receipt Date: 20070703
  Transmission Date: 20080405
  Serious: No
  Sender: FDA-Public Use
  Company Number: US200707002267

PATIENT
  Age: 75 Year
  Sex: Female

DRUGS (4)
  1. BYETTA [Suspect]
     Dosage: 5 UG, 2/D, SUBCUTANEOUS ; 10 UG, 2/D, SUBCUTANEOUS
     Route: 058
     Dates: start: 20070404, end: 20070530
  2. GLUCOVANCE [Concomitant]
  3. AVANDIA [Concomitant]
  4. LIPITOR [Concomitant]

REACTIONS (6)
  - ASTHENIA [None]
  - EPISTAXIS [None]
  - FATIGUE [None]
  - NAUSEA [None]
  - TREMOR [None]
  - VOMITING [None]
